FAERS Safety Report 25569661 (Version 1)
Quarter: 2025Q3

REPORT INFORMATION
  Report Type: Report from Study
  Country: US (occurrence: US)
  Receive Date: 20250717
  Receipt Date: 20250717
  Transmission Date: 20251020
  Serious: Yes (Hospitalization)
  Sender: ALEXION PHARMACEUTICALS
  Company Number: US-AstraZeneca-CH-00909134A

PATIENT
  Age: 68 Year
  Sex: Female

DRUGS (1)
  1. OSIMERTINIB [Suspect]
     Active Substance: OSIMERTINIB
     Route: 065

REACTIONS (6)
  - Liver injury [Unknown]
  - Decreased appetite [Unknown]
  - Skin irritation [Unknown]
  - Cough [Unknown]
  - Fatigue [Unknown]
  - General physical health deterioration [Unknown]
